FAERS Safety Report 8175051-4 (Version None)
Quarter: 2012Q1

REPORT INFORMATION
  Report Type: 
  Country: None (occurrence: None)
  Receive Date: 20120229
  Receipt Date: 20120222
  Transmission Date: 20120608
  Serious: Yes (Other)
  Sender: FDA-Public Use
  Company Number: PHHY2011JP112744

PATIENT
  Age: 74 Year
  Sex: Female

DRUGS (8)
  1. CARBOPLATIN [Suspect]
     Dates: start: 20100901
  2. RIFAMPICIN [Suspect]
     Indication: PULMONARY TUBERCULOSIS
     Dosage: 3 DF, UNK
     Route: 048
     Dates: start: 20100125, end: 20110720
  3. CARBOPLATIN [Suspect]
     Indication: OVARIAN CANCER
     Dosage: 400 MG, UNK
     Route: 042
     Dates: start: 20090716, end: 20100112
  4. ISONIAZID [Suspect]
     Indication: PULMONARY TUBERCULOSIS
     Dosage: 3 DF/DAY
     Route: 048
     Dates: start: 20100125, end: 20110720
  5. ETHAMBUTOL HYDROCHLORIDE [Suspect]
     Indication: PULMONARY TUBERCULOSIS
     Dosage: 3 DF/DAY
     Route: 048
     Dates: start: 20100125, end: 20110330
  6. PYRAZINAMIDE [Suspect]
     Indication: PULMONARY TUBERCULOSIS
     Dosage: 1.2 G/DAY
     Route: 048
     Dates: start: 20100125, end: 20110330
  7. PACLITAXEL [Suspect]
     Indication: OVARIAN CANCER
     Dosage: 80 MG, UNK
     Route: 042
     Dates: start: 20090716, end: 20100112
  8. DOCETAXEL [Suspect]
     Dosage: UNK UKN, UNK
     Dates: start: 20100901

REACTIONS (3)
  - CONCOMITANT DISEASE PROGRESSION [None]
  - NEOPLASM RECURRENCE [None]
  - NEUROPATHY PERIPHERAL [None]
